FAERS Safety Report 14553923 (Version 2)
Quarter: 2018Q1

REPORT INFORMATION
  Report Type: Report from Study
  Country: JP (occurrence: JP)
  Receive Date: 20180220
  Receipt Date: 20180313
  Transmission Date: 20180509
  Serious: Yes (Hospitalization)
  Sender: FDA-Public Use
  Company Number: JP-OTSUKA-2018_003971

PATIENT
  Age: 52 Year
  Sex: Male
  Weight: 68 kg

DRUGS (10)
  1. ABILIFY [Concomitant]
     Active Substance: ARIPIPRAZOLE
     Indication: SCHIZOPHRENIA
     Dosage: 24 MG, QD
     Route: 048
     Dates: end: 20170815
  2. MEILAX [Concomitant]
     Active Substance: ETHYL LOFLAZEPATE
     Indication: PRODUCT USED FOR UNKNOWN INDICATION
     Dosage: 2 MG, QD
     Route: 048
  3. ARIPIPRAZOLE (DUAL CHAMBER) [Suspect]
     Active Substance: ARIPIPRAZOLE
     Dosage: 400 MG, SINGLE, DELTOID
     Route: 030
     Dates: start: 20171004, end: 20171004
  4. ARIPIPRAZOLE (DUAL CHAMBER) [Suspect]
     Active Substance: ARIPIPRAZOLE
     Indication: SCHIZOPHRENIA
     Dosage: 400 MG, SINGLE, DELTOID
     Route: 030
     Dates: start: 20171101, end: 20171101
  5. ZYLORIC [Concomitant]
     Active Substance: ALLOPURINOL
     Indication: PRODUCT USED FOR UNKNOWN INDICATION
     Dosage: 100 MG, QD
     Route: 048
  6. AMOBAN [Concomitant]
     Active Substance: ZOPICLONE
     Indication: PRODUCT USED FOR UNKNOWN INDICATION
     Dosage: 10 MG, QD
     Route: 048
  7. EPINASTINE. [Concomitant]
     Active Substance: EPINASTINE HYDROCHLORIDE
     Indication: PRODUCT USED FOR UNKNOWN INDICATION
     Dosage: 20 MG, QD
     Route: 048
  8. ARIPIPRAZOLE (DUAL CHAMBER) [Suspect]
     Active Substance: ARIPIPRAZOLE
     Dosage: 400 MG, SINGLE, DELTOID
     Route: 030
     Dates: start: 20170913, end: 20170913
  9. ARIPIPRAZOLE (DUAL CHAMBER) [Suspect]
     Active Substance: ARIPIPRAZOLE
     Dosage: 400 MG, SINGLE, DELTOID
     Route: 030
     Dates: start: 20170816, end: 20170816
  10. RISPERIDONE. [Concomitant]
     Active Substance: RISPERIDONE
     Indication: SCHIZOPHRENIA
     Dosage: 6 MG, QD
     Route: 048
     Dates: start: 20171120

REACTIONS (3)
  - Inappropriate schedule of drug administration [Unknown]
  - Delusion [Not Recovered/Not Resolved]
  - Psychiatric symptom [Unknown]

NARRATIVE: CASE EVENT DATE: 20171120
